FAERS Safety Report 10881979 (Version 1)
Quarter: 2015Q1

REPORT INFORMATION
  Report Type: Spontaneous
  Country: US (occurrence: None)
  Receive Date: 20150226
  Receipt Date: 20150226
  Transmission Date: 20150721
  Serious: Yes (Hospitalization, Other)
  Sender: FDA-Public Use
  Company Number: None

PATIENT
  Age: 48 Year
  Sex: Female

DRUGS (1)
  1. TASIGNA [Suspect]
     Active Substance: NILOTINIB
     Indication: CHRONIC MYELOID LEUKAEMIA
     Dosage: 2 CAPSULES BID ORAL
     Route: 048
     Dates: start: 20131230, end: 20150225

REACTIONS (2)
  - Condition aggravated [None]
  - Chronic myeloid leukaemia [None]

NARRATIVE: CASE EVENT DATE: 20150127
